FAERS Safety Report 15746961 (Version 2)
Quarter: 2018Q4

REPORT INFORMATION
  Report Type: Spontaneous
  Country: US (occurrence: US)
  Receive Date: 20181220
  Receipt Date: 20181221
  Transmission Date: 20190205
  Serious: No
  Sender: FDA-Public Use
  Company Number: US-SA-2018SA328272

PATIENT
  Age: 25 Year
  Sex: Female

DRUGS (1)
  1. ACT KIDS ANTICAVITY FLUORIDE FRUIT PUNCH [Suspect]
     Active Substance: SODIUM FLUORIDE
     Dosage: UNK
     Route: 048

REACTIONS (1)
  - Burning sensation [Recovered/Resolved]
